FAERS Safety Report 8494202-5 (Version None)
Quarter: 2012Q3

REPORT INFORMATION
  Report Type: 
  Country: None (occurrence: None)
  Receive Date: 20120709
  Receipt Date: 20120704
  Transmission Date: 20120928
  Serious: Yes (Hospitalization)
  Sender: FDA-Public Use
  Company Number: PHHY2012BE056819

PATIENT
  Age: 92 Year
  Sex: Female

DRUGS (7)
  1. EXELON [Suspect]
     Dosage: UNK
     Dates: start: 20111201, end: 20111201
  2. TRAZODONE HCL [Concomitant]
  3. EXELON [Suspect]
     Dosage: 3 DF, ONCE/SINGLE
     Route: 062
  4. PATOMED [Concomitant]
  5. BISOPROLOL FUMARATE [Concomitant]
  6. SIMVASTATIN [Concomitant]
  7. EXELON [Suspect]
     Indication: DEMENTIA ALZHEIMER'S TYPE
     Dosage: 4.6 MG, UNK
     Route: 062
     Dates: end: 20111201

REACTIONS (2)
  - INCORRECT DOSE ADMINISTERED [None]
  - UPPER GASTROINTESTINAL HAEMORRHAGE [None]
